FAERS Safety Report 7490111-9 (Version None)
Quarter: 2011Q2

REPORT INFORMATION
  Report Type: 
  Country: None (occurrence: None)
  Receive Date: 20110519
  Receipt Date: 20110512
  Transmission Date: 20111010
  Serious: Yes (Hospitalization)
  Sender: FDA-Public Use
  Company Number: US-PFIZER INC-2011103309

PATIENT
  Sex: Female
  Weight: 67.12 kg

DRUGS (4)
  1. ACETAMINOPHEN [Suspect]
     Indication: MYALGIA
     Dosage: UNK
     Dates: start: 20100101, end: 20110101
  2. VITAMIN D [Concomitant]
     Dosage: UNK
  3. LIPITOR [Suspect]
     Indication: BLOOD CHOLESTEROL INCREASED
     Dosage: 10 MG, DAILY
     Route: 048
  4. ACETYLSALICYLIC ACID [Concomitant]
     Indication: BLOOD CHOLESTEROL INCREASED
     Dosage: 81 MG, DAILY
     Route: 048

REACTIONS (7)
  - NEURALGIA [None]
  - PALPITATIONS [None]
  - MYALGIA [None]
  - PAIN [None]
  - MALAISE [None]
  - DRUG INEFFECTIVE [None]
  - DRUG DOSE OMISSION [None]
